FAERS Safety Report 12631473 (Version 2)
Quarter: 2016Q3

REPORT INFORMATION
  Report Type: Spontaneous
  Country: US (occurrence: US)
  Receive Date: 20160808
  Receipt Date: 20160808
  Transmission Date: 20161109
  Serious: No
  Sender: FDA-Public Use
  Company Number: US-BEH-2015054097

PATIENT
  Sex: Female
  Weight: 60 kg

DRUGS (16)
  1. CORTICOSTEROIDS [Concomitant]
     Active Substance: CORTICOSTEROID NOS
  2. LEVOTHYROXINE. [Concomitant]
     Active Substance: LEVOTHYROXINE
  3. METHOTREXATE. [Concomitant]
     Active Substance: METHOTREXATE
  4. HIZENTRA [Suspect]
     Active Substance: HUMAN IMMUNOGLOBULIN G
     Indication: IMMUNODEFICIENCY COMMON VARIABLE
     Route: 058
  5. ACETAMINOPHEN. [Concomitant]
     Active Substance: ACETAMINOPHEN
  6. ROCEPHIN [Concomitant]
     Active Substance: CEFTRIAXONE SODIUM
  7. LIDOCAINE/ PROLOCAINE [Concomitant]
  8. XANAX [Concomitant]
     Active Substance: ALPRAZOLAM
  9. DIPHENHYDRAMINE. [Concomitant]
     Active Substance: DIPHENHYDRAMINE
  10. CHLORDIAZEPOX [Concomitant]
  11. CELEXA [Concomitant]
     Active Substance: CITALOPRAM HYDROBROMIDE
  12. FOLIC ACID. [Concomitant]
     Active Substance: FOLIC ACID
  13. NORCO [Concomitant]
     Active Substance: ACETAMINOPHEN\HYDROCODONE BITARTRATE
  14. PANTOPRAZOLE [Concomitant]
     Active Substance: PANTOPRAZOLE SODIUM
  15. MOBIC [Concomitant]
     Active Substance: MELOXICAM
  16. EPIPEN [Concomitant]
     Active Substance: EPINEPHRINE

REACTIONS (2)
  - Headache [Unknown]
  - Malaise [Unknown]
